FAERS Safety Report 10155838 (Version 3)
Quarter: 2014Q3

REPORT INFORMATION
  Report Type: Spontaneous
  Country: US (occurrence: US)
  Receive Date: 20140506
  Receipt Date: 20140918
  Transmission Date: 20150326
  Serious: Yes (Death, Hospitalization)
  Sender: FDA-Public Use
  Company Number: US-JNJFOC-20140502914

PATIENT
  Age: 62 Year
  Sex: Female
  Weight: 99 kg

DRUGS (8)
  1. BENICAR [Concomitant]
     Active Substance: OLMESARTAN MEDOXOMIL
  2. JANUVIA [Concomitant]
     Active Substance: SITAGLIPTIN PHOSPHATE
  3. STEROID ANTIBACTERIALS [Concomitant]
     Active Substance: UNSPECIFIED INGREDIENT
     Route: 045
  4. METHOTREXATE [Concomitant]
     Active Substance: METHOTREXATE
     Route: 037
     Dates: start: 20131226, end: 20140130
  5. ACTOS [Concomitant]
     Active Substance: PIOGLITAZONE HYDROCHLORIDE
  6. IMBRUVICA [Suspect]
     Active Substance: IBRUTINIB
     Indication: MANTLE CELL LYMPHOMA
     Route: 048
     Dates: start: 20140114, end: 20140129
  7. GLYBURIDE. [Concomitant]
     Active Substance: GLYBURIDE
  8. VYTORIN [Concomitant]
     Active Substance: EZETIMIBE\SIMVASTATIN

REACTIONS (8)
  - Cerebral haemorrhage [Fatal]
  - Myopathy [Unknown]
  - Hypomagnesaemia [Unknown]
  - Pulmonary oedema [Unknown]
  - Diarrhoea [Unknown]
  - Cardiac failure congestive [Unknown]
  - Acute respiratory failure [Unknown]
  - Pancytopenia [Unknown]

NARRATIVE: CASE EVENT DATE: 2014
